FAERS Safety Report 6130860-8 (Version None)
Quarter: 2009Q1

REPORT INFORMATION
  Report Type: 
  Country: None (occurrence: None)
  Receive Date: 20090323
  Receipt Date: 20090312
  Transmission Date: 20090719
  Serious: Yes (Other)
  Sender: FDA-Public Use
  Company Number: GXKR2009CH03300

PATIENT
  Sex: Female

DRUGS (1)
  1. ENALAPRIL (NGX) (ENALAPARIL MALEATE) [Suspect]
     Dosage: MATERNAL DOSE: 340 MG, TRANSPLACENTAL
     Route: 064

REACTIONS (7)
  - DIALYSIS [None]
  - HYPERTENSION [None]
  - MATERNAL DRUGS AFFECTING FOETUS [None]
  - NEONATAL DISORDER [None]
  - POLYCYTHAEMIA [None]
  - PREMATURE BABY [None]
  - RENAL FAILURE ACUTE [None]
